FAERS Safety Report 8778910 (Version 2)
Quarter: 2013Q1

REPORT INFORMATION
  Report Type: Spontaneous
  Country: US (occurrence: US)
  Receive Date: 20120912
  Receipt Date: 20130104
  Transmission Date: 20140127
  Serious: Yes (Other)
  Sender: FDA-Public Use
  Company Number: US-ELI_LILLY_AND_COMPANY-US201209001584

PATIENT
  Sex: Female
  Weight: 43.08 kg

DRUGS (2)
  1. CYMBALTA [Suspect]
     Indication: DEPRESSION
     Dosage: 30 MG, BID
     Route: 048
     Dates: start: 20120529
  2. CYMBALTA [Suspect]
     Dosage: 60 MG, QD
     Route: 048

REACTIONS (4)
  - Erosive oesophagitis [Recovered/Resolved]
  - Device occlusion [Recovered/Resolved]
  - Wrong technique in drug usage process [Unknown]
  - Off label use [Unknown]
